FAERS Safety Report 20121247 (Version 1)
Quarter: 2021Q4

REPORT INFORMATION
  Report Type: Spontaneous
  Country: US (occurrence: None)
  Receive Date: 20211124
  Receipt Date: 20211124
  Transmission Date: 20220304
  Serious: No
  Sender: FDA-Public Use
  Company Number: None

PATIENT
  Age: 9 Year
  Sex: Male

DRUGS (1)
  1. ADVATE [Suspect]
     Active Substance: ANTIHEMOPHILIC FACTOR, HUMAN RECOMBINANT
     Indication: Factor VIII deficiency
     Dosage: FREQUENCY : 3 TIMES A WEEK;?
     Route: 042
     Dates: start: 20211110, end: 20211122

REACTIONS (2)
  - Product dispensing error [None]
  - Extra dose administered [None]

NARRATIVE: CASE EVENT DATE: 20211122
